FAERS Safety Report 8612149-8 (Version None)
Quarter: 2012Q3

REPORT INFORMATION
  Report Type: 
  Country: None (occurrence: None)
  Receive Date: 20120822
  Receipt Date: 20120813
  Transmission Date: 20120928
  Serious: Yes (Hospitalization)
  Sender: FDA-Public Use
  Company Number: US-BAYER-2012-037448

PATIENT
  Age: 22 Year
  Sex: Female
  Weight: 68.02 kg

DRUGS (5)
  1. VICODIN [Concomitant]
     Indication: PAIN
     Dosage: UNK
  2. YAZ [Suspect]
     Indication: MENORRHAGIA
  3. PROZAC [Concomitant]
     Indication: DEPRESSION
     Dosage: UNK
     Route: 048
     Dates: start: 20000101, end: 20090101
  4. CLONAZEPAM [Concomitant]
     Indication: ANXIETY
     Dosage: UNK
     Route: 048
     Dates: start: 20030101, end: 20100101
  5. FLUOXETINE HCL [Concomitant]
     Dosage: 20MG/40MG
     Route: 048
     Dates: start: 20050711, end: 20050927

REACTIONS (4)
  - THROMBOSIS [None]
  - OEDEMA PERIPHERAL [None]
  - PAIN IN EXTREMITY [None]
  - DEEP VEIN THROMBOSIS [None]
